FAERS Safety Report 4506572-0 (Version None)
Quarter: 2004Q4

REPORT INFORMATION
  Report Type: 
  Country: None (occurrence: None)
  Receive Date: 20041122
  Receipt Date: 20041021
  Transmission Date: 20050328
  Serious: Yes (Hospitalization)
  Sender: FDA-Public Use
  Company Number: PHRM2004FR03161

PATIENT
  Age: 13 Year
  Sex: Female
  Weight: 42 kg

DRUGS (7)
  1. LIORESAL [Suspect]
     Indication: NERVOUS SYSTEM DISORDER
     Dosage: 10 MG, TID
     Route: 048
     Dates: end: 20040910
  2. DEPAKENE [Suspect]
     Indication: EPILEPSY
     Dosage: 500 MG, TID
     Route: 048
     Dates: end: 20040910
  3. THERALENE [Suspect]
     Indication: SLEEP DISORDER
     Dosage: 10 MG, QD
     Route: 048
     Dates: end: 20040910
  4. SMECTA [Suspect]
     Route: 048
  5. DUPHALAC [Suspect]
     Route: 048
  6. ACETAMINOPHEN [Concomitant]
     Indication: BONE PAIN
     Route: 048
     Dates: start: 20040301
  7. OMEPRAZOLE [Concomitant]
     Indication: OESOPHAGEAL DISORDER
     Dosage: 10 MG, QD
     Route: 048

REACTIONS (9)
  - ABDOMINAL DISTENSION [None]
  - BLOOD AMYLASE INCREASED [None]
  - C-REACTIVE PROTEIN INCREASED [None]
  - GENERAL PHYSICAL HEALTH DETERIORATION [None]
  - LEUKOCYTOSIS [None]
  - LIPASE INCREASED [None]
  - PANCREATIC NECROSIS [None]
  - PANCREATITIS [None]
  - PYREXIA [None]
